FAERS Safety Report 7272448-1 (Version None)
Quarter: 2011Q1

REPORT INFORMATION
  Report Type: 
  Country: None (occurrence: None)
  Receive Date: 20110203
  Receipt Date: 20110125
  Transmission Date: 20110831
  Serious: Yes (Hospitalization, Disabling, Other)
  Sender: FDA-Public Use
  Company Number: US-ROCHE-509525

PATIENT
  Sex: Female
  Weight: 65.8 kg

DRUGS (1)
  1. ACCUTANE [Suspect]
     Indication: ACNE
     Route: 065
     Dates: start: 20021217, end: 20040801

REACTIONS (12)
  - DEPRESSION [None]
  - DRY SKIN [None]
  - BLOOD TRIGLYCERIDES INCREASED [None]
  - COLITIS [None]
  - MENTAL DISORDER [None]
  - BLOOD CHOLESTEROL INCREASED [None]
  - SUICIDAL IDEATION [None]
  - SELF INJURIOUS BEHAVIOUR [None]
  - COLITIS ULCERATIVE [None]
  - INFLAMMATORY BOWEL DISEASE [None]
  - ANAEMIA [None]
  - ASPARTATE AMINOTRANSFERASE INCREASED [None]
